FAERS Safety Report 8802325 (Version 2)
Quarter: 2012Q4

REPORT INFORMATION
  Report Type: 
  Country: SE (occurrence: SE)
  Receive Date: 20120921
  Receipt Date: 20121016
  Transmission Date: 20130627
  Serious: Yes (Congenital Anomaly)
  Sender: FDA-Public Use
  Company Number: SE-ASTRAZENECA-2012SE71557

PATIENT
  Sex: Male
  Weight: 4.4 kg

DRUGS (2)
  1. SEROQUEL [Suspect]
     Dosage: 50-200 mg daily
     Route: 064
  2. NORTRIPTYLIN [Concomitant]
     Route: 064

REACTIONS (1)
  - Pyloric stenosis [Unknown]
